FAERS Safety Report 4714208-9 (Version None)
Quarter: 2005Q3

REPORT INFORMATION
  Report Type: 
  Country: None (occurrence: None)
  Receive Date: 20050712
  Receipt Date: 20050628
  Transmission Date: 20060218
  Serious: Yes (Hospitalization)
  Sender: FDA-Public Use
  Company Number: BR-2005-012342

PATIENT
  Age: 30 Year
  Sex: Female

DRUGS (1)
  1. YASMIN [Suspect]
     Indication: VAGINAL HAEMORRHAGE
     Dosage: 1 TAB(S), UNK; ORAL
     Route: 048
     Dates: start: 20050201, end: 20050501

REACTIONS (1)
  - HYSTEROSCOPY [None]
